FAERS Safety Report 9606482 (Version 1)
Quarter: 2013Q4

REPORT INFORMATION
  Report Type: Spontaneous
  Country: US (occurrence: US)
  Receive Date: 20131008
  Receipt Date: 20131008
  Transmission Date: 20140711
  Serious: No
  Sender: FDA-Public Use
  Company Number: US-AMGEN-USASP2013055861

PATIENT
  Age: 82 Year
  Sex: Female

DRUGS (5)
  1. PROLIA [Suspect]
     Indication: OSTEOPOROSIS POSTMENOPAUSAL
     Dosage: UNK
     Route: 065
     Dates: start: 201209
  2. TRAMADOL [Concomitant]
     Indication: ARTHRITIS
     Dosage: UNK
     Route: 065
  3. TYLENOL                            /00020001/ [Concomitant]
     Indication: ARTHRITIS
     Dosage: UNK
     Route: 065
  4. STATIN                             /00036501/ [Concomitant]
     Dosage: UNK
     Route: 065
  5. CENTRUM SILVER                     /02363801/ [Concomitant]
     Dosage: UNK
     Route: 065

REACTIONS (4)
  - Gait disturbance [Unknown]
  - Arthralgia [Unknown]
  - Fall [Unknown]
  - Periorbital contusion [Unknown]
